FAERS Safety Report 10064058 (Version 2)
Quarter: 2014Q2

REPORT INFORMATION
  Report Type: Spontaneous
  Country: US (occurrence: US)
  Receive Date: 20140408
  Receipt Date: 20140507
  Transmission Date: 20141212
  Serious: No
  Sender: FDA-Public Use
  Company Number: US-SHIRE-US201401084

PATIENT
  Age: 9 Year
  Sex: Male
  Weight: 28.35 kg

DRUGS (4)
  1. VYVANSE [Suspect]
     Indication: ATTENTION DEFICIT/HYPERACTIVITY DISORDER
     Dosage: 20 MG, 1X/DAY:QD
     Route: 048
     Dates: start: 201212, end: 2013
  2. VYVANSE [Suspect]
     Dosage: UNK UNK(13 MG OF 20 MG CAPSULE MIXED IN WATER), 1X/DAY:QD
     Route: 048
     Dates: start: 2013, end: 20140328
  3. VYVANSE [Suspect]
     Dosage: UNK UNK(15 MG OF 20 MG CAPSULE MIXED IN WATER), 1X/DAY:QD
     Route: 048
     Dates: start: 20140328
  4. RISPERIDONE [Concomitant]
     Indication: ANXIETY
     Dosage: 15 MG, 2X/DAY:BID
     Route: 048
     Dates: start: 2011

REACTIONS (6)
  - Increased appetite [Not Recovered/Not Resolved]
  - Drug effect increased [Recovered/Resolved]
  - Drug prescribing error [Not Recovered/Not Resolved]
  - Psychomotor hyperactivity [Not Recovered/Not Resolved]
  - Drug effect decreased [Not Recovered/Not Resolved]
  - Product quality issue [Unknown]
